FAERS Safety Report 15281622 (Version 2)
Quarter: 2018Q3

REPORT INFORMATION
  Report Type: Spontaneous
  Country: GB (occurrence: GB)
  Receive Date: 20180815
  Receipt Date: 20180827
  Transmission Date: 20181010
  Serious: Yes (Hospitalization, Other)
  Sender: FDA-Public Use
  Company Number: GB-SHIRE-GB201831179

PATIENT

DRUGS (9)
  1. TACROLIMUS. [Suspect]
     Active Substance: TACROLIMUS
     Indication: LIVER TRANSPLANT
     Route: 065
  2. AZATHIOPRINE. [Suspect]
     Active Substance: AZATHIOPRINE
     Dosage: POST LIVER TRANSPLANTATION
  3. MEZAVANT XL [Suspect]
     Active Substance: MESALAMINE
     Dosage: 1600 MG, 1X/DAY:QD
     Route: 065
  4. MEZAVANT XL [Suspect]
     Active Substance: MESALAMINE
     Indication: CHOLANGITIS SCLEROSING
     Dosage: 800 MG, 1X/DAY:QD
     Route: 065
  5. MEZAVANT XL [Suspect]
     Active Substance: MESALAMINE
     Dosage: 2.4 G, UNK
     Route: 065
  6. MEZAVANT XL [Suspect]
     Active Substance: MESALAMINE
     Dosage: 2.4 MG, 2X/DAY:BID
     Route: 065
  7. PREDNISOLONE. [Suspect]
     Active Substance: PREDNISOLONE
     Indication: LIVER TRANSPLANT
     Dosage: DOSE INCREASED
     Route: 065
  8. PREDNISOLONE. [Suspect]
     Active Substance: PREDNISOLONE
     Dosage: 40 MG, 1X/DAY:QD
     Route: 065
  9. AZATHIOPRINE. [Suspect]
     Active Substance: AZATHIOPRINE
     Indication: LIVER TRANSPLANT
     Dosage: LOWER DOSE
     Route: 065

REACTIONS (5)
  - Cytomegalovirus viraemia [Unknown]
  - Treatment failure [Recovered/Resolved]
  - Neutropenia [Unknown]
  - Inflammatory bowel disease [Recovered/Resolved]
  - Iron deficiency anaemia [Unknown]
